FAERS Safety Report 5744573-5 (Version None)
Quarter: 2008Q2

REPORT INFORMATION
  Report Type: 
  Country: None (occurrence: None)
  Receive Date: 20080520
  Receipt Date: 20071129
  Transmission Date: 20081010
  Serious: No
  Sender: FDA-Public Use
  Company Number: US-BOEHRINGER INGELHEIM GMBH, GERMANY-2007-BP-12170BP

PATIENT
  Sex: Male
  Weight: 109 kg

DRUGS (28)
  1. MIRAPEX [Suspect]
     Indication: PARKINSON'S DISEASE
     Route: 048
     Dates: start: 20031113, end: 20070419
  2. MIRAPEX [Suspect]
     Indication: RESTLESS LEGS SYNDROME
  3. SYNTHROID [Concomitant]
     Indication: HYPOTHYROIDISM
  4. LISINOPRIL [Concomitant]
     Indication: HYPERTENSION
  5. NEURONTIN [Concomitant]
  6. PRILOSEC [Concomitant]
  7. DOCUSATE SODIUM [Concomitant]
  8. CARDURA [Concomitant]
  9. ASPIRIN [Concomitant]
  10. LEXAPRO [Concomitant]
  11. XANAX [Concomitant]
  12. ALLEGRA D 24 HOUR [Concomitant]
  13. PRIMIDONE [Concomitant]
  14. PREVACID [Concomitant]
  15. COLCHICINE [Concomitant]
  16. TYLENOL [Concomitant]
  17. TIGAN [Concomitant]
     Indication: NAUSEA
  18. OXYCODONE HCL [Concomitant]
  19. BIA [Concomitant]
  20. B6 [Concomitant]
  21. FOLIC ACID [Concomitant]
     Route: 048
  22. MIRALAX [Concomitant]
  23. LYRICA [Concomitant]
     Indication: NEUROPATHY PERIPHERAL
  24. TUSSIONEX [Concomitant]
  25. LASIX [Concomitant]
  26. CARBIDOPA AND LEVODOPA [Concomitant]
     Indication: PARKINSON'S DISEASE
  27. KLONOPIN [Concomitant]
  28. VITAMIN B-12 [Concomitant]

REACTIONS (6)
  - EMOTIONAL DISTRESS [None]
  - HYPERPHAGIA [None]
  - INJURY [None]
  - OBSESSIVE-COMPULSIVE DISORDER [None]
  - PATHOLOGICAL GAMBLING [None]
  - WEIGHT INCREASED [None]
